FAERS Safety Report 17611018 (Version 1)
Quarter: 2020Q2

REPORT INFORMATION
  Report Type: Spontaneous
  Country: US (occurrence: US)
  Receive Date: 20200401
  Receipt Date: 20200401
  Transmission Date: 20200713
  Serious: No
  Sender: FDA-Public Use
  Company Number: US-VERTEX PHARMACEUTICALS-2020-006920

PATIENT
  Sex: Male
  Weight: 75 kg

DRUGS (1)
  1. TRIKAFTA [Suspect]
     Active Substance: ELEXACAFTOR\IVACAFTOR\TEZACAFTOR
     Indication: CYSTIC FIBROSIS
     Dosage: TEZACAFTOR 100MG/ IVACAFTOR 50MG/ IVACAFTOR 75MG, IVACFATOR 150MG, UNK FREQ
     Route: 048
     Dates: start: 20191213

REACTIONS (1)
  - Cystic fibrosis related diabetes [Not Recovered/Not Resolved]

NARRATIVE: CASE EVENT DATE: 2020
